FAERS Safety Report 22653564 (Version 1)
Quarter: 2023Q2

REPORT INFORMATION
  Report Type: Spontaneous
  Country: US (occurrence: None)
  Receive Date: 20230628
  Receipt Date: 20230628
  Transmission Date: 20230721
  Serious: No
  Sender: FDA-Public Use
  Company Number: None

PATIENT
  Sex: Male

DRUGS (1)
  1. AUSTEDO [Suspect]
     Active Substance: DEUTETRABENAZINE
     Indication: Extrapyramidal disorder
     Dosage: 12MG DAILY ORAL
     Route: 048
     Dates: start: 202306

REACTIONS (2)
  - Therapy cessation [None]
  - Drug ineffective [None]
